FAERS Safety Report 20306030 (Version 1)
Quarter: 2022Q1

REPORT INFORMATION
  Report Type: Spontaneous
  Country: US (occurrence: US)
  Receive Date: 20220106
  Receipt Date: 20220106
  Transmission Date: 20220424
  Serious: Yes (Other)
  Sender: FDA-Public Use
  Company Number: US-GE HEALTHCARE-2021CSU006826

PATIENT
  Age: 47 Year
  Sex: Male

DRUGS (2)
  1. GADOLINIUM [Suspect]
     Active Substance: GADOLINIUM
     Indication: Magnetic resonance imaging abdominal
     Dosage: UNK UNK, SINGLE
     Route: 065
  2. GADOLINIUM [Suspect]
     Active Substance: GADOLINIUM
     Indication: Spermatocele

REACTIONS (2)
  - Gadolinium deposition disease [Unknown]
  - Magnetic resonance imaging head abnormal [Recovered/Resolved]

NARRATIVE: CASE EVENT DATE: 20100101
